FAERS Safety Report 21638356 (Version 6)
Quarter: 2023Q2

REPORT INFORMATION
  Report Type: Report from Study
  Country: US (occurrence: US)
  Receive Date: 20221124
  Receipt Date: 20230616
  Transmission Date: 20230721
  Serious: No
  Sender: FDA-Public Use
  Company Number: US-002147023-NVSC2022US263589

PATIENT
  Age: 66 Year
  Sex: Male

DRUGS (2)
  1. LEQVIO [Suspect]
     Active Substance: INCLISIRAN SODIUM
     Indication: Product used for unknown indication
     Dosage: UNK
     Route: 058
     Dates: start: 20221026
  2. LEQVIO [Suspect]
     Active Substance: INCLISIRAN SODIUM
     Dosage: UNK (26 JAN, SECOND INJECTION)
     Route: 065

REACTIONS (4)
  - Weight increased [Unknown]
  - Feeling abnormal [Unknown]
  - Pain in extremity [Unknown]
  - Hernia [Unknown]

NARRATIVE: CASE EVENT DATE: 20221027
